FAERS Safety Report 9942810 (Version 1)
Quarter: 2014Q1

REPORT INFORMATION
  Report Type: Report from Study
  Country: US (occurrence: US)
  Receive Date: 20140303
  Receipt Date: 20140303
  Transmission Date: 20141002
  Serious: No
  Sender: FDA-Public Use
  Company Number: US-ABBVIE-13P-163-1045358-00

PATIENT
  Age: 64 Year
  Sex: Female

DRUGS (5)
  1. HUMIRA [Suspect]
     Indication: PSORIATIC ARTHROPATHY
     Route: 058
     Dates: start: 2004, end: 2005
  2. HUMIRA [Suspect]
     Route: 058
     Dates: start: 2009
  3. ANTIBIOTICS [Concomitant]
     Indication: PNEUMONIA
     Dates: start: 201301, end: 201301
  4. UNKNOWN INHALERS [Concomitant]
     Indication: PNEUMONIA
     Dates: start: 201301, end: 201302
  5. LEVOTHYROXINE [Concomitant]
     Indication: HYPOTHYROIDISM

REACTIONS (3)
  - Pneumonia [Recovered/Resolved]
  - Influenza [Recovered/Resolved]
  - Drug ineffective [Unknown]
